FAERS Safety Report 17566658 (Version 1)
Quarter: 2020Q1

REPORT INFORMATION
  Report Type: Spontaneous
  Country: JP (occurrence: JP)
  Receive Date: 20200320
  Receipt Date: 20200320
  Transmission Date: 20200409
  Serious: Yes (Death, Other)
  Sender: FDA-Public Use
  Company Number: JP-PFIZER INC-2020119651

PATIENT
  Age: 84 Year
  Sex: Female

DRUGS (1)
  1. CELECOXIB. [Suspect]
     Active Substance: CELECOXIB
     Dosage: UNK
     Dates: start: 201702, end: 201705

REACTIONS (1)
  - Interstitial lung disease [Fatal]
